FAERS Safety Report 7436819-2 (Version None)
Quarter: 2011Q2

REPORT INFORMATION
  Report Type: 
  Country: None (occurrence: None)
  Receive Date: 20110426
  Receipt Date: 20110228
  Transmission Date: 20111010
  Serious: Yes (Hospitalization, Other)
  Sender: FDA-Public Use
  Company Number: US-BAYER-2010-006240

PATIENT
  Age: 18 Year
  Sex: Female
  Weight: 100 kg

DRUGS (9)
  1. YASMIN [Suspect]
     Indication: ORAL CONTRACEPTION
     Dosage: UNK
     Dates: start: 20040101, end: 20051201
  2. YASMIN [Suspect]
     Indication: ACNE
  3. METRONIDAZOLE [Concomitant]
     Dosage: UNK
     Route: 067
     Dates: start: 20080215
  4. VALTREX [Concomitant]
     Dosage: 500 MG, UNK
     Route: 048
     Dates: start: 20071214
  5. SINGULAIR [Concomitant]
     Dosage: 10 MG, UNK
     Route: 048
  6. METFORMIN [Concomitant]
     Dosage: 500 MG, UNK
     Route: 048
     Dates: start: 20080728
  7. HYDROQUINONE [Concomitant]
     Dosage: UNK
     Route: 061
     Dates: start: 20080728
  8. AZITHROMYCIN [Concomitant]
     Dosage: 500 MG, UNK
     Route: 048
  9. ALBUTEROL [Concomitant]
     Dosage: 5 UNK, UNK

REACTIONS (2)
  - CHOLECYSTITIS [None]
  - GALLBLADDER DISORDER [None]
